FAERS Safety Report 4865302-3 (Version None)
Quarter: 2005Q4

REPORT INFORMATION
  Report Type: 
  Country: None (occurrence: None)
  Receive Date: 20051221
  Receipt Date: 20051221
  Transmission Date: 20060501
  Serious: Yes (Life-Threatening, Other)
  Sender: FDA-Public Use
  Company Number: None

PATIENT
  Age: 36 Year
  Sex: Male

DRUGS (1)
  1. TRAMADOL  50 MG ^ULTRAM^ [Suspect]
     Indication: PAIN
     Dosage: AS NEEDED
     Dates: start: 20030416, end: 20040515

REACTIONS (4)
  - ABNORMAL BEHAVIOUR [None]
  - AGGRESSION [None]
  - DISEASE RECURRENCE [None]
  - DRUG DEPENDENCE [None]
